FAERS Safety Report 13285689 (Version 1)
Quarter: 2017Q1

REPORT INFORMATION
  Report Type: Spontaneous
  Country: US (occurrence: US)
  Receive Date: 20170301
  Receipt Date: 20170301
  Transmission Date: 20170428
  Serious: No
  Sender: FDA-Public Use
  Company Number: None

PATIENT
  Age: 41 Year
  Sex: Male

DRUGS (1)
  1. ERTAPENEM [Suspect]
     Active Substance: ERTAPENEM
     Indication: SINUSITIS
     Dosage: FREQUENCY - Q24H
     Route: 042
     Dates: start: 20170226, end: 20170226

REACTIONS (1)
  - Rash [None]

NARRATIVE: CASE EVENT DATE: 20170226
